FAERS Safety Report 8210787-8 (Version None)
Quarter: 2012Q1

REPORT INFORMATION
  Report Type: 
  Country: None (occurrence: None)
  Receive Date: 20120315
  Receipt Date: 20120305
  Transmission Date: 20120608
  Serious: Yes (Hospitalization)
  Sender: FDA-Public Use
  Company Number: US-BIOGENIDEC-2012BI008400

PATIENT
  Age: 36 Year
  Sex: Male

DRUGS (3)
  1. DILANTIN [Concomitant]
     Indication: CONVULSION
  2. TYSABRI [Suspect]
     Indication: MULTIPLE SCLEROSIS
     Route: 042
     Dates: start: 20110614, end: 20111201
  3. ZONEGRAN [Concomitant]
     Indication: CONVULSION

REACTIONS (2)
  - KIDNEY INFECTION [None]
  - CYSTITIS [None]
